FAERS Safety Report 4371323-X (Version None)
Quarter: 2004Q2

REPORT INFORMATION
  Report Type: 
  Country: None (occurrence: None)
  Receive Date: 20040603
  Receipt Date: 20040520
  Transmission Date: 20050107
  Serious: Yes (Hospitalization)
  Sender: FDA-Public Use
  Company Number: 2004UW10794

PATIENT
  Sex: Female

DRUGS (8)
  1. ATENOLOL [Suspect]
     Dates: start: 19990607, end: 19990101
  2. ZESTORETIC [Suspect]
     Dosage: 20 MG BID
  3. GLUCOPHAGE [Suspect]
     Dosage: 500 MG BID
  4. HYDROCHLOROTHIAZIDE [Suspect]
  5. PRAVACHOL [Suspect]
     Dosage: 40 MG QD
  6. COUMADIN [Suspect]
     Dosage: 3 MG HS
  7. CATAPRES [Suspect]
     Dosage: 0.1 MG BID
  8. DILANTIN [Suspect]
     Dosage: 300 MG QD PO
     Route: 048

REACTIONS (2)
  - DYSPNOEA [None]
  - PALPITATIONS [None]
